FAERS Safety Report 14455827 (Version 3)
Quarter: 2018Q2

REPORT INFORMATION
  Report Type: Spontaneous
  Country: DE (occurrence: DE)
  Receive Date: 20180130
  Receipt Date: 20180522
  Transmission Date: 20180711
  Serious: Yes (Death)
  Sender: FDA-Public Use
  Company Number: DE-DEXPHARM-20180042

PATIENT
  Age: 14 Year
  Sex: Male
  Weight: 40 kg

DRUGS (7)
  1. PIPAMPERON-MEURAXPHARM 4MG/ML [Interacting]
     Active Substance: PIPAMPERONE HYDROCHLORIDE
     Indication: AGGRESSION
     Dosage: 0.75-0-0.75
     Route: 048
     Dates: start: 20170728
  2. PIPAMPERON-MEURAXPHARM 4MG/ML [Interacting]
     Active Substance: PIPAMPERONE HYDROCHLORIDE
     Indication: AGGRESSION
     Dosage: 60MG EVERY DAY
     Route: 048
     Dates: start: 20170801
  3. OMEPRAZOLE- NOT DEXCEL^S PRODUCT [Suspect]
     Active Substance: OMEPRAZOLE
     Indication: PRODUCT USED FOR UNKNOWN INDICATION
  4. RISPERIDONE-NOT DEXCEL^S PRODUCT [Interacting]
     Active Substance: RISPERIDONE
     Indication: AGGRESSION
     Dosage: 0.25MG-0.25-0.25MG
     Route: 048
     Dates: start: 20160708
  5. RISPERIDONE-NOT DEXCEL^S PRODUCT [Interacting]
     Active Substance: RISPERIDONE
     Indication: AUTISM SPECTRUM DISORDER
     Route: 048
     Dates: start: 20160708, end: 20170717
  6. MOVICOL [Concomitant]
     Active Substance: POLYETHYLENE GLYCOL 3350\POTASSIUM CHLORIDE\SODIUM BICARBONATE\SODIUM CHLORIDE
  7. VITAMIN D [Concomitant]
     Active Substance: CHOLECALCIFEROL
     Dates: start: 20171006

REACTIONS (15)
  - Fatigue [Unknown]
  - Growth accelerated [Unknown]
  - Increased appetite [Unknown]
  - Haemoptysis [Unknown]
  - Weight increased [Unknown]
  - Muscle spasms [Unknown]
  - Restlessness [Unknown]
  - Scleral haemorrhage [Unknown]
  - Brain oedema [Fatal]
  - Arrhythmia [Unknown]
  - Infection susceptibility increased [Unknown]
  - Sudden cardiac death [Fatal]
  - Hypotonia [Unknown]
  - Conduct disorder [Unknown]
  - Dizziness [Unknown]

NARRATIVE: CASE EVENT DATE: 2017
